FAERS Safety Report 11624536 (Version 1)
Quarter: 2015Q4

REPORT INFORMATION
  Report Type: Spontaneous
  Country: US (occurrence: US)
  Receive Date: 20151013
  Receipt Date: 20151013
  Transmission Date: 20160304
  Serious: No
  Sender: FDA-Public Use
  Company Number: US-BAYER-2015-442446

PATIENT
  Age: 17 Year
  Sex: Female
  Weight: 136.5 kg

DRUGS (1)
  1. CLARITIN [Suspect]
     Active Substance: LORATADINE
     Dosage: 10 DF, ONCE

REACTIONS (1)
  - Product use issue [None]
